FAERS Safety Report 7880712-8 (Version None)
Quarter: 2011Q4

REPORT INFORMATION
  Report Type: 
  Country: None (occurrence: None)
  Receive Date: 20111101
  Receipt Date: 20111028
  Transmission Date: 20120403
  Serious: Yes (Hospitalization)
  Sender: FDA-Public Use
  Company Number: GB-JNJFOC-20110508856

PATIENT
  Age: 57 Year
  Sex: Female

DRUGS (7)
  1. SIMVASTATIN [Concomitant]
     Dates: start: 20100823
  2. OXYBUTYNIN [Concomitant]
     Dates: start: 20080926
  3. CO DYDRAMOL [Concomitant]
     Dates: start: 20100601
  4. SALAMOL EASI-BREATHE [Concomitant]
     Dates: start: 20110126
  5. CITALOPRAM HYDROBROMIDE [Concomitant]
     Dates: start: 20070219
  6. GOLIMUMAB [Suspect]
     Indication: RHEUMATOID ARTHRITIS
     Route: 058
     Dates: start: 20101019, end: 20110125
  7. LISINOPRIL [Concomitant]
     Dates: start: 20090810

REACTIONS (3)
  - ADNEXA UTERI CYST [None]
  - VOMITING [None]
  - ADNEXA UTERI MASS [None]
